FAERS Safety Report 8254623-2 (Version None)
Quarter: 2012Q2

REPORT INFORMATION
  Report Type: 
  Country: None (occurrence: None)
  Receive Date: 20120403
  Receipt Date: 20120326
  Transmission Date: 20120825
  Serious: Yes (Hospitalization)
  Sender: FDA-Public Use
  Company Number: US-BAYER-201034039NA

PATIENT
  Age: 39 Year
  Sex: Female
  Weight: 100 kg

DRUGS (10)
  1. TRIAMCINOLONE [Concomitant]
     Dosage: 0.025 %, UNK
     Dates: start: 20080623
  2. NSAID'S [Concomitant]
     Dosage: UNK UNK, PRN
  3. PREVPAC [Concomitant]
     Dosage: UNK
     Dates: start: 20080815
  4. SYNTHROID [Concomitant]
     Indication: THYROID DISORDER
     Dosage: UNK
     Dates: start: 20080423
  5. IRON SUPPLEMENT [Concomitant]
  6. YASMIN [Suspect]
     Indication: CONTRACEPTION
     Dosage: UNK
     Route: 048
     Dates: start: 20080401, end: 20080701
  7. DROSPIRENONE AND ETHINYL ESTRADIOL [Suspect]
     Indication: CONTRACEPTION
     Dosage: UNK
     Route: 048
     Dates: start: 20080701, end: 20080901
  8. ASPIRIN [Concomitant]
     Indication: THROMBOSIS PROPHYLAXIS
     Dosage: UNK
     Dates: start: 20080401
  9. PREVACID [Concomitant]
     Dosage: UNK
     Dates: start: 20081111
  10. IRON IN OTHER COMBINATIONS [Concomitant]
     Dosage: UNK
     Dates: start: 20080704

REACTIONS (2)
  - PULMONARY EMBOLISM [None]
  - DEEP VEIN THROMBOSIS [None]
